FAERS Safety Report 23095245 (Version 3)
Quarter: 2023Q4

REPORT INFORMATION
  Report Type: Spontaneous
  Country: JP (occurrence: JP)
  Receive Date: 20231023
  Receipt Date: 20231121
  Transmission Date: 20240110
  Serious: Yes (Other)
  Sender: FDA-Public Use
  Company Number: JP-CHUGAI-2023034775

PATIENT
  Age: 73 Year
  Sex: Male
  Weight: 85 kg

DRUGS (2)
  1. TECENTRIQ [Suspect]
     Active Substance: ATEZOLIZUMAB
     Indication: Hepatocellular carcinoma
     Route: 041
     Dates: start: 20221214, end: 20230814
  2. AVASTIN [Suspect]
     Active Substance: BEVACIZUMAB
     Indication: Hepatocellular carcinoma
     Route: 041
     Dates: start: 20221214, end: 20230814

REACTIONS (2)
  - Dermatitis psoriasiform [Recovering/Resolving]
  - Thyroid disorder [Recovering/Resolving]

NARRATIVE: CASE EVENT DATE: 20230501
